FAERS Safety Report 8217626-X (Version None)
Quarter: 2012Q1

REPORT INFORMATION
  Report Type: 
  Country: None (occurrence: None)
  Receive Date: 20120319
  Receipt Date: 20120319
  Transmission Date: 20120608
  Serious: No
  Sender: FDA-Public Use
  Company Number: None

PATIENT
  Age: 62 Year
  Sex: Female
  Weight: 61.234 kg

DRUGS (1)
  1. JINTELI [Suspect]
     Indication: HORMONE REPLACEMENT THERAPY
     Dosage: 1/5
     Route: 048
     Dates: start: 20101201, end: 20120101

REACTIONS (6)
  - PRODUCT SUBSTITUTION ISSUE [None]
  - PAIN IN EXTREMITY [None]
  - SKIN DISCOLOURATION [None]
  - HYPERTENSION [None]
  - SKIN BURNING SENSATION [None]
  - NEURITIS [None]
